FAERS Safety Report 6490251-7 (Version None)
Quarter: 2009Q4

REPORT INFORMATION
  Report Type: 
  Country: None (occurrence: None)
  Receive Date: 20091211
  Receipt Date: 20091120
  Transmission Date: 20100525
  Serious: No
  Sender: FDA-Public Use
  Company Number: US-ROCHE-670468

PATIENT
  Age: 24 Month
  Sex: Male
  Weight: 13 kg

DRUGS (4)
  1. TAMIFLU [Suspect]
     Indication: H1N1 INFLUENZA
     Dosage: MEDICATION ERROR
     Route: 048
     Dates: start: 20091116, end: 20091116
  2. TAMIFLU [Suspect]
     Dosage: DOSE: 30MG/2ML BID AS PRESCRIBED
     Route: 048
     Dates: start: 20091117
  3. ALBUTEROL [Concomitant]
     Dosage: .083% NEUBILIZATION
     Dates: start: 20091116
  4. AMOXICILLIN [Concomitant]
     Dosage: DOSE: 250 MG/5ML
     Dates: start: 20091116

REACTIONS (2)
  - MEDICATION ERROR [None]
  - NO ADVERSE EVENT [None]
